FAERS Safety Report 13136868 (Version 3)
Quarter: 2017Q1

REPORT INFORMATION
  Report Type: Spontaneous
  Country: BR (occurrence: BR)
  Receive Date: 20170123
  Receipt Date: 20170324
  Transmission Date: 20170428
  Serious: Yes (Other)
  Sender: FDA-Public Use
  Company Number: BR-GLAXOSMITHKLINE-BR2016GSK154005

PATIENT
  Sex: Female
  Weight: 68 kg

DRUGS (4)
  1. CORTISONE [Suspect]
     Active Substance: CORTISONE\HYDROCORTISONE
     Indication: PRODUCT USED FOR UNKNOWN INDICATION
  2. BENLYSTA [Suspect]
     Active Substance: BELIMUMAB
     Indication: SYSTEMIC LUPUS ERYTHEMATOSUS
     Dosage: UNK
     Route: 042
     Dates: start: 20160411
  3. BENLYSTA [Suspect]
     Active Substance: BELIMUMAB
     Dosage: UNK
     Route: 042
     Dates: start: 20170116
  4. BENLYSTA [Suspect]
     Active Substance: BELIMUMAB
     Dosage: UNK
     Route: 042
     Dates: start: 20161205

REACTIONS (7)
  - Circumstance or information capable of leading to medication error [Not Recovered/Not Resolved]
  - Protein urine present [Recovered/Resolved]
  - Complement factor C4 decreased [Unknown]
  - Lupus nephritis [Recovered/Resolved]
  - Complement factor C3 decreased [Unknown]
  - Inappropriate schedule of drug administration [Recovered/Resolved]
  - Weight fluctuation [Unknown]
